FAERS Safety Report 11418878 (Version 1)
Quarter: 2015Q3

REPORT INFORMATION
  Report Type: Spontaneous
  Country: GB (occurrence: GB)
  Receive Date: 20150826
  Receipt Date: 20150826
  Transmission Date: 20151125
  Serious: Yes (Other)
  Sender: FDA-Public Use
  Company Number: GB-ACCORD-033186

PATIENT
  Age: 71 Year
  Sex: Female
  Weight: 75.74 kg

DRUGS (9)
  1. COD-LIVER OIL [Concomitant]
     Active Substance: FISH OIL
  2. SALMETEROL [Concomitant]
     Active Substance: SALMETEROL
  3. AMLODIPINE [Suspect]
     Active Substance: AMLODIPINE BESYLATE
     Indication: BLOOD PRESSURE INCREASED
     Route: 048
     Dates: start: 20150512, end: 20150630
  4. ASCORBIC ACID. [Concomitant]
     Active Substance: ASCORBIC ACID
  5. BECOTIDE [Concomitant]
     Active Substance: BECLOMETHASONE DIPROPIONATE
  6. GARLIC EXTRACT [Concomitant]
  7. NICOTINAMIDE/RIBOFLAVIN/THIAMINE HYDROCHLORIDE [Concomitant]
  8. PROTELOS [Concomitant]
     Active Substance: STRONTIUM RANELATE
  9. ZINC OXIDE. [Concomitant]
     Active Substance: ZINC OXIDE

REACTIONS (4)
  - Musculoskeletal stiffness [Not Recovered/Not Resolved]
  - Discomfort [Not Recovered/Not Resolved]
  - Pain in extremity [Not Recovered/Not Resolved]
  - Arthralgia [Not Recovered/Not Resolved]

NARRATIVE: CASE EVENT DATE: 20150518
